FAERS Safety Report 9022542 (Version 1)
Quarter: 2013Q1

REPORT INFORMATION
  Report Type: Spontaneous
  Country: US (occurrence: US)
  Receive Date: 20130118
  Receipt Date: 20130118
  Transmission Date: 20140127
  Serious: No
  Sender: FDA-Public Use
  Company Number: US-GLAXOSMITHKLINE-A0969159A

PATIENT
  Sex: Female

DRUGS (4)
  1. PROMACTA [Suspect]
     Indication: PRODUCT USED FOR UNKNOWN INDICATION
     Dosage: 50MG PER DAY
     Route: 048
  2. IBUPROFEN [Concomitant]
     Route: 048
  3. ALBUTEROL [Concomitant]
     Route: 055
  4. TYLENOL [Concomitant]

REACTIONS (4)
  - Condition aggravated [Unknown]
  - Dry skin [Unknown]
  - Pruritus [Unknown]
  - Ill-defined disorder [Unknown]
